FAERS Safety Report 7635034-7 (Version None)
Quarter: 2011Q3

REPORT INFORMATION
  Report Type: 
  Country: None (occurrence: None)
  Receive Date: 20110726
  Receipt Date: 20110712
  Transmission Date: 20111222
  Serious: Yes (Hospitalization, Other)
  Sender: FDA-Public Use
  Company Number: DE-BAYER-2011-040554

PATIENT
  Age: 79 Year
  Sex: Male
  Weight: 67 kg

DRUGS (21)
  1. PANTOPRAZOLE [Concomitant]
     Indication: ABDOMINAL PAIN UPPER
     Dosage: DAILY DOSE 40 MG
     Route: 048
     Dates: start: 19950101
  2. NOVAMINSULFON [Concomitant]
     Indication: BACK PAIN
     Dosage: 20 DROPS MAX 1X/WEEK
     Route: 048
     Dates: start: 20070101
  3. SORAFENIB (RAF KINASE INHIBITOR) [Suspect]
     Dosage: 400 MG, BID, CYCLE 5
     Route: 048
     Dates: start: 20110310, end: 20110407
  4. AMLODIPINE [Concomitant]
     Indication: HYPERTENSION
     Dosage: DAILY DOSE 5 MG
     Route: 048
     Dates: start: 19950101
  5. DULCOLAX [Concomitant]
     Indication: CONSTIPATION
     Dosage: PRN SUPP
     Dates: start: 20110122
  6. IMODIUM [LOPERAMIDE,SIMETICONE] [Concomitant]
     Indication: DIARRHOEA
     Route: 048
     Dates: start: 20110402
  7. SORAFENIB (RAF KINASE INHIBITOR) [Suspect]
     Dosage: 400 MG, BID CYCLE 2
     Route: 048
     Dates: start: 20101215, end: 20110111
  8. SORAFENIB (RAF KINASE INHIBITOR) [Suspect]
     Dosage: 400 MG, BID CYCLE 6
     Route: 048
     Dates: start: 20110407, end: 20110512
  9. OLMESARTAN MEDOXOMIL [Concomitant]
     Indication: HYPERTENSION
     Dosage: DAILY DOSE 20 MG
     Route: 048
     Dates: start: 19950101
  10. SIMVASTATIN [Concomitant]
     Indication: HYPERLIPIDAEMIA
     Dosage: DAILY DOSE 20 MG
     Route: 048
  11. VALORON [TILIDINE HYDROCHLORIDE] [Concomitant]
     Indication: ARTHRALGIA
  12. LEVOTHYROXINE SODIUM [Concomitant]
     Indication: HYPOTHYROIDISM
     Dosage: DAILY DOSE 150 ?G
     Route: 048
     Dates: start: 20090401
  13. SORAFENIB (RAF KINASE INHIBITOR) [Suspect]
     Indication: THYROID CANCER
     Dosage: 400 MG, BID, CYCLE 1(RANDOM)
     Route: 048
     Dates: start: 20101109, end: 20101215
  14. FOLIC ACID [Suspect]
     Indication: LEUKOPENIA
     Dosage: TOTAL DAILY DOSE 5MG
     Route: 048
     Dates: start: 20110628
  15. SORAFENIB (RAF KINASE INHIBITOR) [Suspect]
     Dosage: 400 MG, BID, CYCLE 3
     Route: 048
     Dates: start: 20110111, end: 20110211
  16. SORAFENIB (RAF KINASE INHIBITOR) [Suspect]
     Dosage: 400 MG, BID, CYCLE 4
     Route: 048
     Dates: start: 20110211, end: 20110310
  17. BISOPROLOL FUMARATE [Concomitant]
     Indication: HYPERTENSION
     Dosage: DAILY DOSE 5 MG
     Route: 048
     Dates: start: 19950101
  18. NOVAMINSULFON [Concomitant]
     Indication: ARTHRALGIA
  19. VALORON [TILIDINE HYDROCHLORIDE] [Concomitant]
     Indication: BACK PAIN
     Dosage: TOTAL DAILY DOSE 20 GTT PRN
     Route: 048
     Dates: start: 20070101
  20. GLIMEPIRIDE [Concomitant]
     Indication: DIABETES MELLITUS
     Dosage: DAILY DOSE 2 MG
     Route: 048
     Dates: start: 20110101
  21. CALCIUM [CALCIUM] [Concomitant]
     Indication: PROPHYLAXIS
     Dosage: DAILY DOSE 2400 MG
     Route: 048
     Dates: start: 20110201

REACTIONS (2)
  - SPINAL FRACTURE [None]
  - ACUTE MYELOID LEUKAEMIA [None]
